FAERS Safety Report 21224069 (Version 1)
Quarter: 2022Q3

REPORT INFORMATION
  Report Type: Spontaneous
  Country: US (occurrence: US)
  Receive Date: 20220817
  Receipt Date: 20220817
  Transmission Date: 20221026
  Serious: No
  Sender: FDA-Public Use
  Company Number: US-SA-2022MK000116

PATIENT
  Age: 40 Year
  Sex: Male
  Weight: 62.652 kg

DRUGS (1)
  1. AFREZZA [Suspect]
     Active Substance: INSULIN HUMAN
     Indication: Type 1 diabetes mellitus
     Dosage: 12 UNITS BEFORE EACH MEAL
     Dates: start: 20200624

REACTIONS (2)
  - Anti-insulin antibody increased [Unknown]
  - Blood glucose decreased [Unknown]
